FAERS Safety Report 5751993-1 (Version None)
Quarter: 2008Q2

REPORT INFORMATION
  Report Type: 
  Country: None (occurrence: None)
  Receive Date: 20080527
  Receipt Date: 20080519
  Transmission Date: 20081010
  Serious: Yes (Other)
  Sender: FDA-Public Use
  Company Number: 2008SP005296

PATIENT
  Age: 58 Year
  Sex: Male
  Weight: 108.8633 kg

DRUGS (3)
  1. CLARITIN-D 24 HOUR [Suspect]
     Indication: INFLUENZA
     Dosage: 10 MG; QD; PO
     Route: 048
     Dates: start: 20080218, end: 20080222
  2. CLARITIN-D 24 HOUR [Suspect]
     Indication: RHINORRHOEA
     Dosage: 10 MG; QD; PO
     Route: 048
     Dates: start: 20080218, end: 20080222
  3. CLARITIN-D 24 HOUR [Suspect]
     Indication: THROAT IRRITATION
     Dosage: 10 MG; QD; PO
     Route: 048
     Dates: start: 20080218, end: 20080222

REACTIONS (6)
  - APHASIA [None]
  - COUGH [None]
  - DYSPHONIA [None]
  - INSOMNIA [None]
  - PSYCHOTIC DISORDER [None]
  - RENAL PAIN [None]
